FAERS Safety Report 21490672 (Version 1)
Quarter: 2022Q4

REPORT INFORMATION
  Report Type: Spontaneous
  Country: DE (occurrence: DE)
  Receive Date: 20221021
  Receipt Date: 20221021
  Transmission Date: 20230112
  Serious: Yes (Other)
  Sender: FDA-Public Use
  Company Number: DE-SUN PHARMACEUTICAL INDUSTRIES LTD-2022R1-360155

PATIENT
  Sex: Male

DRUGS (3)
  1. MESALAMINE [Suspect]
     Active Substance: MESALAMINE
     Indication: Crohn^s disease
     Dosage: UNK
     Route: 064
  2. URSODIOL [Suspect]
     Active Substance: URSODIOL
     Indication: Product used for unknown indication
     Dosage: 1 GRAM, DAILY
     Route: 064
  3. AZATHIOPRINE [Suspect]
     Active Substance: AZATHIOPRINE
     Indication: Crohn^s disease
     Dosage: UNK
     Route: 064

REACTIONS (2)
  - Foetal exposure during pregnancy [Unknown]
  - Premature baby [Unknown]
